FAERS Safety Report 17618865 (Version 2)
Quarter: 2020Q2

REPORT INFORMATION
  Report Type: Report from Study
  Country: AR (occurrence: AR)
  Receive Date: 20200402
  Receipt Date: 20200505
  Transmission Date: 20200713
  Serious: Yes (Hospitalization)
  Sender: FDA-Public Use
  Company Number: NVSC2020AR088627

PATIENT
  Sex: Male

DRUGS (2)
  1. REVOLADE [Suspect]
     Active Substance: ELTROMBOPAG
     Indication: APLASTIC ANAEMIA
     Dosage: 75 MG, QD
     Route: 048
     Dates: start: 20200315
  2. NEORAL [Suspect]
     Active Substance: CYCLOSPORINE
     Indication: APLASTIC ANAEMIA
     Dosage: 400 MG, QD
     Route: 065
     Dates: start: 202003

REACTIONS (9)
  - Arthralgia [Recovering/Resolving]
  - Muscle spasms [Recovering/Resolving]
  - Platelet count decreased [Recovering/Resolving]
  - Blood magnesium decreased [Recovering/Resolving]
  - Oropharyngeal pain [Recovering/Resolving]
  - Adverse drug reaction [Unknown]
  - Neck pain [Recovering/Resolving]
  - Pain [Recovering/Resolving]
  - Red blood cell count decreased [Recovering/Resolving]
